FAERS Safety Report 5311486-2 (Version None)
Quarter: 2007Q2

REPORT INFORMATION
  Report Type: 
  Country: None (occurrence: None)
  Receive Date: 20070426
  Receipt Date: 20070426
  Transmission Date: 20071010
  Serious: Yes (Hospitalization)
  Sender: FDA-Public Use
  Company Number: None

PATIENT
  Age: 74 Year
  Sex: Male
  Weight: 89.8 kg

DRUGS (24)
  1. FOSINOPRIL SODIUM [Suspect]
     Indication: DIABETES MELLITUS NON-INSULIN-DEPENDENT
     Dosage: 20MG Q DAY
     Dates: start: 20070122, end: 20070127
  2. FOSINOPRIL SODIUM [Suspect]
     Indication: HYPERTENSION
     Dosage: 20MG Q DAY
     Dates: start: 20070122, end: 20070127
  3. LISINOPRIL [Suspect]
     Indication: DIABETES MELLITUS NON-INSULIN-DEPENDENT
     Dosage: 40MG Q DAY
     Dates: start: 20050203, end: 20070122
  4. LISINOPRIL [Suspect]
     Indication: HYPERTENSION
     Dosage: 40MG Q DAY
     Dates: start: 20050203, end: 20070122
  5. TRIAMTERENE AND HYDROCHLOROTHIAZIDE [Concomitant]
  6. SPIRONOLACTONE [Concomitant]
  7. LISINOPRIL [Concomitant]
  8. AMMONIUM LACTATE [Concomitant]
  9. ARTIFICIAL TEARS POLYVINYL ALCOHOL INSTILL [Concomitant]
  10. ASPIRIN [Concomitant]
  11. CAMPHOR/MENTHOL [Concomitant]
  12. CARBAMAZEPINE [Concomitant]
  13. CELLUVISC [Concomitant]
  14. CYCLOBENZAPRINE HCL [Concomitant]
  15. DOCUSATE NA [Concomitant]
  16. DORZOLAMIDE/TIMOLOL [Concomitant]
  17. FINASTERIDE [Concomitant]
  18. FOSINOPRIL SODIUM [Concomitant]
  19. INSULIN HUMAN [Concomitant]
  20. INSULIN NOVOLIN N-HUMAN NPH [Concomitant]
  21. METOPROLOL SUCCINATE [Concomitant]
  22. NITROGLYCERIN [Concomitant]
  23. OMEPRAZOLE [Concomitant]
  24. RANITIDINE HCL [Concomitant]

REACTIONS (8)
  - BLOOD PRESSURE INCREASED [None]
  - CONFUSIONAL STATE [None]
  - DRUG HYPERSENSITIVITY [None]
  - ELECTROCARDIOGRAM T WAVE ABNORMAL [None]
  - HYDRONEPHROSIS [None]
  - HYPERKALAEMIA [None]
  - OBSTRUCTION [None]
  - RENAL FAILURE ACUTE [None]
